FAERS Safety Report 19892819 (Version 1)
Quarter: 2021Q3

REPORT INFORMATION
  Report Type: Spontaneous
  Country: US (occurrence: US)
  Receive Date: 20210928
  Receipt Date: 20210928
  Transmission Date: 20211014
  Serious: Yes (Other)
  Sender: FDA-Public Use
  Company Number: US-SUNOVION-2021SUN003713

PATIENT

DRUGS (1)
  1. LATUDA [Suspect]
     Active Substance: LURASIDONE HYDROCHLORIDE
     Dosage: UNK
     Route: 048

REACTIONS (6)
  - Pulmonary embolism [Unknown]
  - Paralysis [Unknown]
  - Decreased activity [Unknown]
  - Pain [Unknown]
  - Balance disorder [Unknown]
  - Musculoskeletal stiffness [Unknown]
